FAERS Safety Report 6415074-6 (Version None)
Quarter: 2009Q4

REPORT INFORMATION
  Report Type: 
  Country: None (occurrence: None)
  Receive Date: 20091021
  Receipt Date: 20090728
  Transmission Date: 20100525
  Serious: Yes (Disabling)
  Sender: FDA-Public Use
  Company Number: 2009GR_BP2230

PATIENT
  Age: 56 Year
  Sex: Male

DRUGS (3)
  1. FINASTERIDE [Suspect]
     Indication: BENIGN PROSTATIC HYPERPLASIA
     Dosage: 5 MG (5 MG) ORAL
     Route: 048
     Dates: start: 20090408, end: 20090526
  2. TAMSULOSIN HYDROCHLORIDE (TAMSULOSIN) [Concomitant]
  3. HYDROCHLORIDE (TAMSULOSIN) [Concomitant]

REACTIONS (3)
  - AGGRESSION [None]
  - APATHY [None]
  - LOSS OF LIBIDO [None]
